FAERS Safety Report 8613446-2 (Version None)
Quarter: 2012Q3

REPORT INFORMATION
  Report Type: 
  Country: None (occurrence: None)
  Receive Date: 20120822
  Receipt Date: 20120807
  Transmission Date: 20120928
  Serious: Yes (Hospitalization, Other)
  Sender: FDA-Public Use
  Company Number: US-009507513-1202USA03509

PATIENT

DRUGS (7)
  1. FOSAMAX [Suspect]
     Dosage: 70 MG, UNK
     Route: 048
     Dates: start: 20080313, end: 20080604
  2. ALENDRONATE SODIUM [Suspect]
     Dosage: 70 MG, UNK
     Dates: start: 20080705, end: 20091006
  3. FOSAMAX [Suspect]
     Indication: OSTEOPOROSIS
     Dosage: 70 MG, UNK
     Route: 048
     Dates: start: 19980301, end: 20081001
  4. FOSAMAX PLUS D [Suspect]
     Dosage: 70 MG, UNK
     Route: 048
     Dates: start: 20061113, end: 20071019
  5. FOSAMAX [Suspect]
     Indication: OSTEOPENIA
     Dosage: 5 UNK, UNK
     Dates: start: 19990715
  6. FOSAMAX PLUS D [Suspect]
     Dosage: 70 MG, UNK
     Route: 048
     Dates: start: 20091103, end: 20100909
  7. VITAMINS (UNSPECIFIED) [Concomitant]
     Dosage: UNK

REACTIONS (12)
  - KNEE ARTHROPLASTY [None]
  - VAGINOPLASTY [None]
  - LEUKOCYTOSIS [None]
  - FEMUR FRACTURE [None]
  - ARTHRALGIA [None]
  - SINUS OPERATION [None]
  - SURGERY [None]
  - COLONOSCOPY [None]
  - OSTEOARTHRITIS [None]
  - VAGINAL PROLAPSE REPAIR [None]
  - LOW TURNOVER OSTEOPATHY [None]
  - HYSTERECTOMY [None]
